FAERS Safety Report 10190659 (Version 1)
Quarter: 2014Q2

REPORT INFORMATION
  Report Type: Spontaneous
  Country: CH (occurrence: CH)
  Receive Date: 20140523
  Receipt Date: 20140523
  Transmission Date: 20141212
  Serious: Yes (Hospitalization)
  Sender: FDA-Public Use
  Company Number: CH-ROCHE-1403145

PATIENT
  Age: 95 Year
  Sex: Female

DRUGS (13)
  1. TAMIFLU [Suspect]
     Indication: INFLUENZA
     Route: 048
     Dates: start: 20140209, end: 20140209
  2. ACCUPAQUE [Suspect]
     Indication: SCAN WITH CONTRAST
     Route: 040
     Dates: start: 20140208, end: 20140208
  3. AUGMENTIN [Suspect]
     Indication: BRONCHOPNEUMONIA
     Route: 048
     Dates: start: 20140209, end: 20140209
  4. ASPIRINE [Concomitant]
     Indication: ISCHAEMIC CARDIOMYOPATHY
     Route: 048
  5. COVERSUM [Concomitant]
     Indication: HYPERTENSION
     Route: 048
     Dates: start: 20140213
  6. TOREM [Concomitant]
     Indication: CARDIAC FAILURE
     Route: 048
  7. TAVEGYL [Concomitant]
     Indication: HYPERSENSITIVITY
     Route: 048
     Dates: start: 20140208, end: 20140208
  8. PREDNISONE [Concomitant]
     Indication: HYPERSENSITIVITY
  9. NEXIUM [Concomitant]
     Indication: GASTROOESOPHAGEAL REFLUX PROPHYLAXIS
  10. DIFLUCAN [Concomitant]
     Indication: FUNGAL INFECTION
     Route: 048
     Dates: start: 20140211, end: 20140211
  11. TEMESTA (SWITZERLAND) [Concomitant]
     Indication: INSOMNIA
     Route: 048
     Dates: start: 20140213
  12. DAFALGAN [Concomitant]
     Indication: PAIN
     Route: 048
  13. CLEXANE [Concomitant]
     Indication: THROMBOSIS PROPHYLAXIS
     Route: 058
     Dates: start: 20140210, end: 20140210

REACTIONS (1)
  - Vasculitic rash [Recovered/Resolved]
